FAERS Safety Report 20741395 (Version 1)
Quarter: 2022Q2

REPORT INFORMATION
  Report Type: Report from Study
  Country: US (occurrence: US)
  Receive Date: 20220422
  Receipt Date: 20220422
  Transmission Date: 20220721
  Serious: Yes (Hospitalization)
  Sender: FDA-Public Use
  Company Number: US-TEVA-2022-US-2029474

PATIENT
  Age: 72 Year
  Sex: Female
  Weight: 54 kg

DRUGS (17)
  1. OXALIPLATIN [Suspect]
     Active Substance: OXALIPLATIN
     Indication: Colorectal cancer metastatic
     Dosage: 130 MG, EVERY 2 WEEKS
     Route: 042
     Dates: start: 20210622, end: 20210622
  2. FLUOROURACIL [Suspect]
     Active Substance: FLUOROURACIL
     Indication: Colorectal cancer metastatic
     Dosage: EVERY 2 WEEKS
     Route: 042
     Dates: start: 20210622, end: 20210624
  3. LEUCOVORIN CALCIUM [Suspect]
     Active Substance: LEUCOVORIN CALCIUM
     Indication: Colorectal cancer metastatic
     Dosage: 600 MG, EVERY  2 WEEKS
     Route: 042
     Dates: start: 20210622, end: 20210622
  4. ENCORAFENIB [Suspect]
     Active Substance: ENCORAFENIB
     Indication: Colorectal cancer metastatic
     Dosage: ONCE DAILY
     Route: 048
     Dates: start: 20210622, end: 20210705
  5. CETUXIMAB [Suspect]
     Active Substance: CETUXIMAB
     Indication: Colorectal cancer metastatic
     Dosage: EVERY 2 WEEKS
     Route: 042
     Dates: start: 20210608, end: 20210608
  6. ESCITALOPRAM [Concomitant]
     Active Substance: ESCITALOPRAM OXALATE
     Indication: Depression
  7. FERROUS SULFATE [Concomitant]
     Active Substance: FERROUS SULFATE
  8. FOLIC ACID [Concomitant]
     Active Substance: FOLIC ACID
  9. ENOXAPARIN [Concomitant]
     Active Substance: ENOXAPARIN
     Indication: Thrombosis
     Dates: start: 20210526
  10. LEVOTHYROXINE [Concomitant]
     Active Substance: LEVOTHYROXINE
     Indication: Hypothyroidism
  11. PROCHLORPERAZINE [Concomitant]
     Active Substance: PROCHLORPERAZINE
     Indication: Nausea
     Dates: start: 20210624
  12. HYDROCORTISONE [Concomitant]
     Active Substance: HYDROCORTISONE
     Indication: Product used for unknown indication
     Dates: start: 20210628
  13. AMMONIUM LACTATE [Concomitant]
     Active Substance: AMMONIUM LACTATE
     Indication: Product used for unknown indication
     Dates: start: 20210629
  14. TRIAMCINOLONE [Concomitant]
     Active Substance: TRIAMCINOLONE
     Indication: Rash
     Dates: start: 20210628
  15. REGLAN [Concomitant]
     Active Substance: METOCLOPRAMIDE HYDROCHLORIDE
     Indication: Nausea
     Dates: start: 20210608, end: 20210707
  16. MINOCYCLINE [Concomitant]
     Active Substance: MINOCYCLINE HYDROCHLORIDE
     Indication: Product used for unknown indication
     Dates: start: 20210608, end: 20210707
  17. OXYCODONE [Concomitant]
     Active Substance: OXYCODONE
     Indication: Pain
     Dates: start: 20210706

REACTIONS (4)
  - Syncope [Recovered/Resolved]
  - Diarrhoea [Recovered/Resolved]
  - Clostridium difficile infection [Recovered/Resolved]
  - Neutropenia [Recovered/Resolved]

NARRATIVE: CASE EVENT DATE: 20210714
